FAERS Safety Report 12114052 (Version 1)
Quarter: 2016Q1

REPORT INFORMATION
  Report Type: Spontaneous
  Country: US (occurrence: None)
  Receive Date: 20160224
  Receipt Date: 20160224
  Transmission Date: 20160526
  Serious: Yes (Hospitalization)
  Sender: FDA-Public Use
  Company Number: None

PATIENT
  Age: 17 Year
  Sex: Male
  Weight: 50 kg

DRUGS (2)
  1. 6MP [Suspect]
     Active Substance: MERCAPTOPURINE
     Indication: CROHN^S DISEASE
     Dosage: 25 MG ALTERNATING WITH 50 MG QD, ORAL
     Route: 048
  2. IRON SUPPLEMENT [Concomitant]
     Active Substance: IRON

REACTIONS (6)
  - Histiocytosis haematophagic [None]
  - Malaise [None]
  - Cytomegalovirus infection [None]
  - Pancytopenia [None]
  - Fatigue [None]
  - Pyrexia [None]

NARRATIVE: CASE EVENT DATE: 20160205
